FAERS Safety Report 18610666 (Version 3)
Quarter: 2021Q1

REPORT INFORMATION
  Report Type: Spontaneous
  Country: US (occurrence: US)
  Receive Date: 20201214
  Receipt Date: 20210113
  Transmission Date: 20210419
  Serious: Yes (Hospitalization)
  Sender: FDA-Public Use
  Company Number: US-GW PHARMA-202012USGW04293

PATIENT

DRUGS (8)
  1. EPIDIOLEX [Suspect]
     Active Substance: CANNABIDIOL
     Dosage: DOSE INCREASED (UPPED AGAIN), UNK
     Route: 048
     Dates: start: 2020
  2. EPIDIOLEX [Suspect]
     Active Substance: CANNABIDIOL
     Indication: SEIZURE
     Dosage: 50 MG, UNK
     Route: 048
     Dates: start: 2018
  3. EPIDIOLEX [Suspect]
     Active Substance: CANNABIDIOL
     Dosage: DOSE INCREASED, UNK (AS GAINED 18 POUNDS)
     Route: 048
     Dates: end: 2020
  4. EPIDIOLEX [Suspect]
     Active Substance: CANNABIDIOL
     Dosage: DOSE INCREASED, UNK (DUE TO DIFFERENT TYPE OF SEIZURE)
     Route: 048
     Dates: start: 2020, end: 2020
  5. KEPPRA [Concomitant]
     Active Substance: LEVETIRACETAM
     Dosage: DOSE INCREASED
     Route: 065
  6. EPIDIOLEX [Suspect]
     Active Substance: CANNABIDIOL
     Dosage: 75 MG, UNK (DECIDED TARGET DOSE WAS 100 MG)
     Route: 048
  7. EPIDIOLEX [Suspect]
     Active Substance: CANNABIDIOL
     Dosage: 50 MG, UNK (REDUCED DUE TO IRRITABLE)
     Route: 048
  8. KEPPRA [Concomitant]
     Active Substance: LEVETIRACETAM
     Indication: SEIZURE
     Dosage: UNK
     Route: 065

REACTIONS (15)
  - Feeling abnormal [Unknown]
  - Weight increased [Unknown]
  - Irritability [Unknown]
  - Decreased activity [Unknown]
  - Disturbance in attention [Unknown]
  - Sleep disorder [Unknown]
  - Seizure [Unknown]
  - Seizure [Recovered/Resolved]
  - Disturbance in attention [Unknown]
  - Feeling abnormal [Unknown]
  - Seizure [Recovered/Resolved]
  - Change in seizure presentation [Recovered/Resolved]
  - Decreased appetite [Recovered/Resolved]
  - Diarrhoea [Recovered/Resolved]
  - Product administered to patient of inappropriate age [Unknown]

NARRATIVE: CASE EVENT DATE: 2020
